FAERS Safety Report 7796314-8 (Version None)
Quarter: 2011Q4

REPORT INFORMATION
  Report Type: 
  Country: None (occurrence: None)
  Receive Date: 20111005
  Receipt Date: 20110927
  Transmission Date: 20120403
  Serious: Yes (Hospitalization)
  Sender: FDA-Public Use
  Company Number: US-BIOGENIDEC-2011BI021024

PATIENT
  Age: 30 Year
  Sex: Female

DRUGS (1)
  1. TYSABRI [Suspect]
     Indication: MULTIPLE SCLEROSIS
     Route: 042
     Dates: start: 20090227, end: 20110330

REACTIONS (6)
  - HERPES ZOSTER [None]
  - WOUND SEPSIS [None]
  - SKIN ULCER [None]
  - INFECTED SKIN ULCER [None]
  - DIARRHOEA [None]
  - URINARY TRACT INFECTION [None]
